FAERS Safety Report 23338173 (Version 2)
Quarter: 2024Q1

REPORT INFORMATION
  Report Type: Spontaneous
  Country: US (occurrence: US)
  Receive Date: 20231226
  Receipt Date: 20240110
  Transmission Date: 20240409
  Serious: Yes (Death, Hospitalization, Other)
  Sender: FDA-Public Use
  Company Number: US-GILEAD-2023-0656086

PATIENT
  Age: 68 Year
  Sex: Female

DRUGS (6)
  1. LETAIRIS [Suspect]
     Active Substance: AMBRISENTAN
     Indication: Pulmonary hypertension
     Route: 065
     Dates: start: 20230207, end: 20230321
  2. SILDENAFIL [Concomitant]
     Active Substance: SILDENAFIL
     Indication: Pulmonary hypertension
     Dates: start: 20200114, end: 20230427
  3. SPIRONOLACTONE [Concomitant]
     Active Substance: SPIRONOLACTONE
     Dates: start: 20150101, end: 20230427
  4. FUROSEMIDE [Concomitant]
     Active Substance: FUROSEMIDE
     Dates: start: 20200114, end: 20230427
  5. LACTULOSE [Concomitant]
     Active Substance: LACTULOSE
     Dates: start: 20150114, end: 20230427
  6. TRELEGY ELLIPTA [Concomitant]
     Active Substance: FLUTICASONE FUROATE\UMECLIDINIUM BROMIDE\VILANTEROL TRIFENATATE
     Indication: Bronchitis chronic
     Dates: start: 20210601, end: 20230427

REACTIONS (9)
  - Pulmonary oedema [Fatal]
  - Oedema [Fatal]
  - Dyspnoea [Fatal]
  - Hepatic enzyme increased [Fatal]
  - Gastrointestinal haemorrhage [Fatal]
  - Sepsis [Fatal]
  - Pneumonia [Fatal]
  - Oxygen consumption increased [Fatal]
  - Anaemia [Fatal]

NARRATIVE: CASE EVENT DATE: 20230311
